FAERS Safety Report 4610720-1 (Version None)
Quarter: 2005Q2

REPORT INFORMATION
  Report Type: 
  Country: None (occurrence: None)
  Receive Date: 20050228
  Receipt Date: 20041202
  Transmission Date: 20051028
  Serious: Yes (Hospitalization)
  Sender: FDA-Public Use
  Company Number: 210854

PATIENT
  Age: 15 Year
  Sex: Female

DRUGS (6)
  1. NUTROPIN AQ [Suspect]
     Indication: GROWTH HORMONE DEFICIENCY
     Dosage: 1.7 MG, 6/WEEK; SUBCUTANEOUS (SEE IMAGE)
     Route: 058
     Dates: start: 20041115, end: 20041123
  2. NUTROPIN AQ [Suspect]
     Indication: GROWTH HORMONE DEFICIENCY
     Dosage: 1.7 MG, 6/WEEK; SUBCUTANEOUS (SEE IMAGE)
     Route: 058
     Dates: start: 20040105
  3. NUTROPIN AQ [Suspect]
     Indication: GROWTH HORMONE DEFICIENCY
     Dosage: 1.7 MG, 6/WEEK; SUBCUTANEOUS (SEE IMAGE)
     Route: 058
     Dates: start: 20041129
  4. DIGOXIN [Concomitant]
  5. ENALAPRIL MALEATE [Concomitant]
  6. LASIX [Concomitant]

REACTIONS (2)
  - OEDEMA PERIPHERAL [None]
  - WEIGHT INCREASED [None]
